FAERS Safety Report 9554397 (Version 3)
Quarter: 2013Q4

REPORT INFORMATION
  Report Type: Report from Study
  Country: CA (occurrence: CA)
  Receive Date: 20130925
  Receipt Date: 20131018
  Transmission Date: 20140711
  Serious: Yes (Disabling, Other)
  Sender: FDA-Public Use
  Company Number: PHHY2013CA106816

PATIENT
  Age: 53 Year
  Sex: Female

DRUGS (11)
  1. ACLASTA [Suspect]
     Indication: OSTEOPOROSIS POSTMENOPAUSAL
     Dosage: 5 MG, UNK
     Route: 042
     Dates: start: 201204
  2. CIPRO ^MILES^ [Concomitant]
     Dosage: UNK UKN, UNK
  3. LORAZEPAM [Concomitant]
     Dosage: UNK UKN, UNK
  4. PERCOCET [Concomitant]
     Dosage: UNK UKN, UNK
  5. DILAUDID [Concomitant]
     Dosage: UNK UKN, UNK
  6. ALTACE [Concomitant]
     Dosage: UNK UKN, UNK
  7. DOXYCYCLINE [Concomitant]
     Dosage: UNK UKN, UNK
  8. CELLCEPT [Concomitant]
     Dosage: UNK UKN, UNK
  9. PREDNISONE [Concomitant]
     Dosage: UNK UKN, UNK
  10. RANITIDINE [Concomitant]
     Dosage: UNK UKN, UNK
  11. ATENOLOL [Concomitant]
     Dosage: UNK UKN, UNK

REACTIONS (4)
  - Systemic lupus erythematosus [Unknown]
  - Atrial fibrillation [Unknown]
  - Blood pressure increased [Unknown]
  - Pain [Unknown]
